FAERS Safety Report 13042868 (Version 1)
Quarter: 2016Q4

REPORT INFORMATION
  Report Type: Spontaneous
  Country: US (occurrence: US)
  Receive Date: 20161219
  Receipt Date: 20161219
  Transmission Date: 20170207
  Serious: No
  Sender: FDA-Public Use
  Company Number: US-JAZZ-2016-US-019980

PATIENT
  Sex: Female

DRUGS (17)
  1. AMBIEN [Concomitant]
     Active Substance: ZOLPIDEM TARTRATE
  2. LANSOPRAZOLE. [Concomitant]
     Active Substance: LANSOPRAZOLE
  3. MULTIVITAMINS [Concomitant]
     Active Substance: VITAMINS
  4. PROZAC [Concomitant]
     Active Substance: FLUOXETINE HYDROCHLORIDE
  5. VYVANSE [Concomitant]
     Active Substance: LISDEXAMFETAMINE DIMESYLATE
  6. LYRICA [Concomitant]
     Active Substance: PREGABALIN
  7. XYREM [Suspect]
     Active Substance: SODIUM OXYBATE
     Indication: NARCOLEPSY
     Dosage: 2.25 G, BID
     Route: 048
     Dates: start: 201505, end: 2015
  8. XYREM [Suspect]
     Active Substance: SODIUM OXYBATE
     Dosage: 4.5 G, BID
     Route: 048
     Dates: start: 201508
  9. ADDERALL [Suspect]
     Active Substance: AMPHETAMINE ASPARTATE\AMPHETAMINE SULFATE\DEXTROAMPHETAMINE SACCHARATE\DEXTROAMPHETAMINE SULFATE
     Indication: PRODUCT USED FOR UNKNOWN INDICATION
     Dosage: UNK MG, UNK
     Dates: start: 20100101, end: 20160616
  10. GABAPENTIN. [Concomitant]
     Active Substance: GABAPENTIN
  11. TRAMADOL HCL [Concomitant]
     Active Substance: TRAMADOL HYDROCHLORIDE
  12. XYREM [Suspect]
     Active Substance: SODIUM OXYBATE
     Indication: CATAPLEXY
     Dosage: DOSE ADJUSTMENT
     Route: 048
     Dates: start: 201506, end: 201507
  13. TUMS [Concomitant]
     Active Substance: CALCIUM CARBONATE
  14. KLONOPIN [Concomitant]
     Active Substance: CLONAZEPAM
  15. EFFEXOR [Concomitant]
     Active Substance: VENLAFAXINE HYDROCHLORIDE
  16. NASONEX [Concomitant]
     Active Substance: MOMETASONE FUROATE
  17. AMITRIPTYLINE HCL [Concomitant]
     Active Substance: AMITRIPTYLINE

REACTIONS (3)
  - Drug tolerance [Unknown]
  - Gastrooesophageal reflux disease [Recovering/Resolving]
  - Periodic limb movement disorder [Recovering/Resolving]
